FAERS Safety Report 5138508-6 (Version None)
Quarter: 2006Q4

REPORT INFORMATION
  Report Type: 
  Country: None (occurrence: None)
  Receive Date: 20061024
  Receipt Date: 20061010
  Transmission Date: 20070319
  Serious: Yes (Death)
  Sender: FDA-Public Use
  Company Number: 231000

PATIENT
  Age: 15 Year
  Sex: Male
  Weight: 27.6 kg

DRUGS (7)
  1. NUTROPIN AQ [Suspect]
     Indication: UNEVALUABLE EVENT
     Dosage: 1.5 MG, 7/WEEK, SUBCUTANEOUS
     Route: 058
     Dates: start: 19970610
  2. CALCIUM CARBONATE          (CALCIUM CARBONATE) [Concomitant]
  3. CATAPRES-TTS-1 [Concomitant]
  4. CARAFATE [Concomitant]
  5. BICITRA         (CITRIC ACID, SODIUM CITRATE) [Concomitant]
  6. ZOLOFT [Concomitant]
  7. HYDROCORTISONE [Concomitant]

REACTIONS (2)
  - CARDIAC ARREST [None]
  - CONVULSION [None]
